FAERS Safety Report 12009656 (Version 1)
Quarter: 2016Q1

REPORT INFORMATION
  Report Type: Spontaneous
  Country: US (occurrence: None)
  Receive Date: 20160204
  Receipt Date: 20160204
  Transmission Date: 20160526
  Serious: Yes (Disabling)
  Sender: FDA-Public Use
  Company Number: None

PATIENT
  Age: 72 Year
  Sex: Female
  Weight: 75.3 kg

DRUGS (11)
  1. SYNTHROID [Concomitant]
     Active Substance: LEVOTHYROXINE SODIUM
  2. L-LYSINE [Concomitant]
     Active Substance: LYSINE
  3. VITAMIN D [Concomitant]
     Active Substance: CHOLECALCIFEROL
  4. PREVAGEN [Concomitant]
     Active Substance: DIETARY SUPPLEMENT
  5. XOLAIR [Concomitant]
     Active Substance: OMALIZUMAB
  6. VALACYCLOVIR [Suspect]
     Active Substance: VALACYCLOVIR HYDROCHLORIDE
     Indication: HERPES ZOSTER
     Route: 048
     Dates: start: 20151118, end: 20151122
  7. WELLBUTRIN [Concomitant]
     Active Substance: BUPROPION HYDROCHLORIDE
  8. DIVAN [Concomitant]
  9. REGLAN [Concomitant]
     Active Substance: METOCLOPRAMIDE HYDROCHLORIDE
  10. ZYRTEC [Concomitant]
     Active Substance: CETIRIZINE HYDROCHLORIDE
  11. PRENATAL VIT [Concomitant]

REACTIONS (9)
  - Tremor [None]
  - Asthenia [None]
  - Nephrolithiasis [None]
  - Headache [None]
  - Fatigue [None]
  - Pallor [None]
  - Chest pain [None]
  - Back pain [None]
  - Swelling [None]

NARRATIVE: CASE EVENT DATE: 20151120
